FAERS Safety Report 22177684 (Version 2)
Quarter: 2023Q2

REPORT INFORMATION
  Report Type: Spontaneous
  Country: HK (occurrence: HK)
  Receive Date: 20230405
  Receipt Date: 20230425
  Transmission Date: 20230721
  Serious: Yes (Other)
  Sender: FDA-Public Use
  Company Number: HK-BAYER-2023A040273

PATIENT

DRUGS (3)
  1. STIVARGA [Suspect]
     Active Substance: REGORAFENIB
     Indication: Rectosigmoid cancer metastatic
     Dosage: UNK
     Dates: start: 201912, end: 202005
  2. STIVARGA [Suspect]
     Active Substance: REGORAFENIB
     Indication: Metastases to liver
  3. TIPIRACIL HYDROCHLORIDE\TRIFLURIDINE [Concomitant]
     Active Substance: TIPIRACIL HYDROCHLORIDE\TRIFLURIDINE
     Dosage: UNK
     Dates: start: 202004

REACTIONS (4)
  - Rectosigmoid cancer metastatic [None]
  - Metastases to central nervous system [None]
  - Palmar-plantar erythrodysaesthesia syndrome [None]
  - Diarrhoea [None]

NARRATIVE: CASE EVENT DATE: 20200501
